FAERS Safety Report 16331978 (Version 1)
Quarter: 2019Q2

REPORT INFORMATION
  Report Type: Spontaneous
  Country: US (occurrence: US)
  Receive Date: 20190520
  Receipt Date: 20190520
  Transmission Date: 20190711
  Serious: No
  Sender: FDA-Public Use
  Company Number: US-TEVA-2018-US-993981

PATIENT
  Sex: Male

DRUGS (1)
  1. CISPLATIN. [Suspect]
     Active Substance: CISPLATIN
     Indication: HEPATOBLASTOMA
     Dosage: ADMINISTERED OVER A PERIOD OF 3 HOURS; 2 CYCLES
     Route: 050

REACTIONS (1)
  - Vomiting [Unknown]
